FAERS Safety Report 12215520 (Version 2)
Quarter: 2016Q2

REPORT INFORMATION
  Report Type: Spontaneous
  Country: DE (occurrence: DE)
  Receive Date: 20160328
  Receipt Date: 20160418
  Transmission Date: 20160815
  Serious: Yes (Hospitalization, Disabling, Other)
  Sender: FDA-Public Use
  Company Number: PHHY2016DE039998

PATIENT
  Age: 41 Year
  Sex: Female
  Weight: 74 kg

DRUGS (1)
  1. TEGRETAL [Suspect]
     Active Substance: CARBAMAZEPINE
     Indication: EPILEPSY
     Dosage: UNK
     Route: 065
     Dates: start: 1997, end: 2004

REACTIONS (2)
  - Psychotic disorder [Recovered/Resolved with Sequelae]
  - Schizoaffective disorder [Recovered/Resolved with Sequelae]

NARRATIVE: CASE EVENT DATE: 1997
